FAERS Safety Report 17594746 (Version 2)
Quarter: 2020Q2

REPORT INFORMATION
  Report Type: Report from Study
  Country: None (occurrence: US)
  Receive Date: 20200327
  Receipt Date: 20200519
  Transmission Date: 20200713
  Serious: Yes (Other)
  Sender: FDA-Public Use
  Company Number: US-ABBVIE-20K-163-3296398-00

PATIENT
  Age: 32 Year
  Sex: Female
  Weight: 127.12 kg

DRUGS (2)
  1. HUMIRA [Suspect]
     Active Substance: ADALIMUMAB
     Indication: HIDRADENITIS
     Route: 058
     Dates: start: 2019, end: 202002
  2. HUMIRA [Suspect]
     Active Substance: ADALIMUMAB
     Indication: PSORIATIC ARTHROPATHY
     Route: 058
     Dates: start: 202004

REACTIONS (7)
  - Post abortion haemorrhage [Recovered/Resolved]
  - Gestational hypertension [Recovering/Resolving]
  - Abortion spontaneous [Unknown]
  - Foetal growth restriction [Unknown]
  - Post abortion haemorrhage [Recovered/Resolved]
  - Maternal exposure during pregnancy [Unknown]
  - Foetal heart rate abnormal [Unknown]

NARRATIVE: CASE EVENT DATE: 202002
